FAERS Safety Report 5109792-X (Version None)
Quarter: 2006Q3

REPORT INFORMATION
  Report Type: 
  Country: None (occurrence: None)
  Receive Date: 20060915
  Receipt Date: 20060902
  Transmission Date: 20061208
  Serious: Yes (Hospitalization)
  Sender: FDA-Public Use
  Company Number: 2006097147

PATIENT
  Age: 62 Year
  Sex: Female
  Weight: 93.5 kg

DRUGS (3)
  1. SUTENT [Suspect]
     Indication: RENAL CELL CARCINOMA STAGE UNSPECIFIED
     Dosage: 50 MG (50 MG) DAILY, INTERVAL: CYCLIC), ORAL
     Route: 048
     Dates: start: 20060701
  2. ATENOLOL [Concomitant]
  3. ACETAMINOPHEN [Concomitant]

REACTIONS (7)
  - BLINDNESS TRANSIENT [None]
  - BLOOD PRESSURE INCREASED [None]
  - CHEST PAIN [None]
  - COMA [None]
  - GASTROOESOPHAGEAL REFLUX DISEASE [None]
  - GRAND MAL CONVULSION [None]
  - PUPIL FIXED [None]
